FAERS Safety Report 16799050 (Version 11)
Quarter: 2020Q1

REPORT INFORMATION
  Report Type: Spontaneous
  Country: US (occurrence: US)
  Receive Date: 20190912
  Receipt Date: 20200327
  Transmission Date: 20200409
  Serious: No
  Sender: FDA-Public Use
  Company Number: US-PFIZER INC-2019390850

PATIENT
  Age: 83 Year
  Sex: Female
  Weight: 52 kg

DRUGS (1)
  1. BOSULIF [Suspect]
     Active Substance: BOSUTINIB MONOHYDRATE
     Indication: CHRONIC MYELOID LEUKAEMIA
     Dosage: 100 MG, ONCE A DAY
     Route: 048

REACTIONS (12)
  - Memory impairment [Not Recovered/Not Resolved]
  - Dysphonia [Unknown]
  - Papule [Not Recovered/Not Resolved]
  - Chest discomfort [Recovered/Resolved]
  - Fluid retention [Recovered/Resolved]
  - Product dose omission [Unknown]
  - Stomatitis [Unknown]
  - Glossodynia [Unknown]
  - Abdominal pain upper [Unknown]
  - Insomnia [Unknown]
  - Condition aggravated [Not Recovered/Not Resolved]
  - Confusional state [Unknown]
